FAERS Safety Report 17574798 (Version 4)
Quarter: 2020Q3

REPORT INFORMATION
  Report Type: Spontaneous
  Country: US (occurrence: US)
  Receive Date: 20200324
  Receipt Date: 20200713
  Transmission Date: 20201102
  Serious: Yes (Other)
  Sender: FDA-Public Use
  Company Number: NVSC2020US082096

PATIENT
  Age: 72 Year
  Sex: Female

DRUGS (2)
  1. BEOVU [Suspect]
     Active Substance: BROLUCIZUMAB-DBLL
     Indication: NEOVASCULAR AGE-RELATED MACULAR DEGENERATION
     Dosage: 6 MG, QMO
     Route: 047
     Dates: start: 20200122
  2. BEOVU [Suspect]
     Active Substance: BROLUCIZUMAB-DBLL
     Dosage: 6 MG, QMO
     Route: 047
     Dates: end: 20200303

REACTIONS (6)
  - Vitritis [Not Recovered/Not Resolved]
  - Visual impairment [Not Recovered/Not Resolved]
  - Anterior chamber inflammation [Not Recovered/Not Resolved]
  - Retinal vasculitis [Unknown]
  - Vitreous floaters [Not Recovered/Not Resolved]
  - Retinal vascular occlusion [Unknown]

NARRATIVE: CASE EVENT DATE: 20200122
